FAERS Safety Report 6565720-1 (Version None)
Quarter: 2010Q1

REPORT INFORMATION
  Report Type: 
  Country: None (occurrence: None)
  Receive Date: 20100201
  Receipt Date: 20090206
  Transmission Date: 20100710
  Serious: No
  Sender: FDA-Public Use
  Company Number: US-ABBOTT-09P-163-0502356-00

PATIENT
  Sex: Female
  Weight: 61.29 kg

DRUGS (2)
  1. LUPRON DEPOT [Suspect]
     Indication: INFERTILITY FEMALE
     Dates: start: 20090101, end: 20090201
  2. LUPRON DEPOT [Suspect]
     Indication: HORMONE SUPPRESSION THERAPY

REACTIONS (1)
  - SUPEROVULATION [None]
